FAERS Safety Report 12519389 (Version 2)
Quarter: 2017Q2

REPORT INFORMATION
  Report Type: Spontaneous
  Country: FR (occurrence: FR)
  Receive Date: 20160630
  Receipt Date: 20170626
  Transmission Date: 20170830
  Serious: Yes (Other)
  Sender: FDA-Public Use
  Company Number: FR-JNJFOC-20160621958

PATIENT
  Age: 65 Year
  Sex: Male

DRUGS (13)
  1. MANIDIPINE [Concomitant]
     Active Substance: MANIDIPINE
  2. RABEPRAZOLE [Concomitant]
     Active Substance: RABEPRAZOLE
  3. IBRUTINIB [Suspect]
     Active Substance: IBRUTINIB
     Indication: CHRONIC LYMPHOCYTIC LEUKAEMIA
     Route: 048
     Dates: start: 20140602, end: 20160616
  4. VALACICLOVIR [Concomitant]
     Active Substance: VALACYCLOVIR HYDROCHLORIDE
  5. COLCHICINE. [Concomitant]
     Active Substance: COLCHICINE
  6. UVEDOSE [Concomitant]
     Active Substance: CHOLECALCIFEROL
  7. STAGID [Concomitant]
     Active Substance: METFORMIN PAMOATE
  8. ACTONEL [Concomitant]
     Active Substance: RISEDRONATE SODIUM
  9. BACTRIM [Concomitant]
     Active Substance: SULFAMETHOXAZOLE\TRIMETHOPRIM
  10. JANUVIA [Suspect]
     Active Substance: SITAGLIPTIN PHOSPHATE
     Indication: PRODUCT USED FOR UNKNOWN INDICATION
  11. GAMMANORM [Concomitant]
     Active Substance: HUMAN IMMUNOGLOBULIN G
  12. SPASFON (PHLOROGLUCINOL, TRIMETHYLPHLOROGLUCINOL) [Concomitant]
     Active Substance: PHLOROGLUCINOL\1,3,5-TRIMETHOXYBENZENE
  13. AERIUS [Suspect]
     Active Substance: DESLORATADINE
     Indication: PRODUCT USED FOR UNKNOWN INDICATION

REACTIONS (1)
  - Interstitial lung disease [Recovered/Resolved]

NARRATIVE: CASE EVENT DATE: 20160420
